FAERS Safety Report 10205982 (Version 1)
Quarter: 2014Q2

REPORT INFORMATION
  Report Type: Spontaneous
  Country: US (occurrence: None)
  Receive Date: 20140527
  Receipt Date: 20140527
  Transmission Date: 20141212
  Serious: Yes (Hospitalization)
  Sender: FDA-Public Use
  Company Number: None

PATIENT
  Age: 60 Year
  Sex: Male

DRUGS (12)
  1. SERTRALINE [Suspect]
     Indication: DEPRESSION
     Route: 048
     Dates: start: 20120207, end: 20120210
  2. OXYMETAZOLINE [Concomitant]
  3. VITAMIN C [Concomitant]
  4. VITAMIN D [Concomitant]
  5. HEPARIN [Concomitant]
  6. HYDROMORPHONE [Concomitant]
  7. MEROCLOPRAMIDE [Concomitant]
  8. PIPERACILLIN/TAZOBACTAM [Concomitant]
  9. RANITIDINE [Concomitant]
  10. THIOMINE [Concomitant]
  11. TORSEMIDE [Concomitant]
  12. ZINC OXIDE [Concomitant]

REACTIONS (1)
  - Hypothermia [None]
